FAERS Safety Report 20502396 (Version 1)
Quarter: 2022Q1

REPORT INFORMATION
  Report Type: Spontaneous
  Country: US (occurrence: None)
  Receive Date: 20220219
  Receipt Date: 20220219
  Transmission Date: 20220423
  Serious: No
  Sender: FDA-Public Use
  Company Number: None

PATIENT
  Age: 34 Year
  Sex: Female
  Weight: 66.15 kg

DRUGS (6)
  1. EMGALITY [Suspect]
     Active Substance: GALCANEZUMAB-GNLM
     Indication: Migraine prophylaxis
     Dosage: OTHER QUANTITY : 1 INJECTION(S);?OTHER FREQUENCY : MONTHLY;?
     Route: 058
     Dates: start: 20220219
  2. SUMATRIPTAN [Concomitant]
     Active Substance: SUMATRIPTAN
  3. ROBAXIN [Concomitant]
     Active Substance: METHOCARBAMOL
  4. VITAMIN D [Concomitant]
     Active Substance: VITAMIN D NOS
  5. ZINC [Concomitant]
     Active Substance: ZINC
  6. VITAMIN C [Concomitant]
     Active Substance: ASCORBIC ACID

REACTIONS (5)
  - Syncope [None]
  - Feeling hot [None]
  - Paraesthesia [None]
  - Muscle contractions involuntary [None]
  - Dizziness [None]

NARRATIVE: CASE EVENT DATE: 20220219
